FAERS Safety Report 5323559-9 (Version None)
Quarter: 2007Q2

REPORT INFORMATION
  Report Type: 
  Country: None (occurrence: None)
  Receive Date: 20070514
  Receipt Date: 20070430
  Transmission Date: 20071010
  Serious: Yes (Other)
  Sender: FDA-Public Use
  Company Number: CA-ELI_LILLY_AND_COMPANY-CA200705002504

PATIENT
  Sex: Female

DRUGS (1)
  1. FORTEO [Suspect]
     Indication: OSTEOPOROSIS
     Dates: start: 20060201

REACTIONS (6)
  - ARTHROPATHY [None]
  - CLAVICLE FRACTURE [None]
  - FALL [None]
  - FRACTURE DISPLACEMENT [None]
  - PELVIC FRACTURE [None]
  - RIB FRACTURE [None]
